FAERS Safety Report 13065845 (Version 1)
Quarter: 2016Q4

REPORT INFORMATION
  Report Type: Spontaneous
  Country: IE (occurrence: IE)
  Receive Date: 20161227
  Receipt Date: 20161227
  Transmission Date: 20170207
  Serious: Yes (Hospitalization)
  Sender: FDA-Public Use
  Company Number: IE-GLAXOSMITHKLINE-IE2016GSK190464

PATIENT

DRUGS (1)
  1. FLOLAN [Suspect]
     Active Substance: EPOPROSTENOL SODIUM
     Indication: PROPHYLAXIS
     Dosage: UNK
     Route: 055

REACTIONS (4)
  - Off label use [Unknown]
  - Product use issue [Unknown]
  - Wrong technique in product usage process [Unknown]
  - Incorrect route of drug administration [Unknown]
